FAERS Safety Report 8834619 (Version 1)
Quarter: 2012Q4

REPORT INFORMATION
  Report Type: Report from Study
  Country: JP (occurrence: JP)
  Receive Date: 20121010
  Receipt Date: 20121010
  Transmission Date: 20130627
  Serious: Yes (Other)
  Sender: FDA-Public Use
  Company Number: JP-ELI_LILLY_AND_COMPANY-JP201210000408

PATIENT
  Age: 62 Year
  Sex: Female
  Weight: 46 kg

DRUGS (8)
  1. TADALAFIL [Suspect]
     Indication: PULMONARY ARTERIAL HYPERTENSION
     Dosage: 20 mg, qd
     Route: 048
     Dates: start: 201103, end: 20110506
  2. REVATIO [Concomitant]
     Dosage: UNK
     Route: 065
  3. WARFARIN [Concomitant]
     Route: 065
  4. FLOLAN [Concomitant]
     Indication: PULMONARY ARTERIAL HYPERTENSION
     Dosage: 4.44 mg, qd
     Route: 042
  5. DIOVAN [Concomitant]
     Indication: HYPERTENSION
     Dosage: 80 mg, qd
     Route: 048
  6. LASIX [Concomitant]
     Indication: PULMONARY ARTERIAL HYPERTENSION
     Dosage: 20 mg, UNK
     Route: 048
  7. MEVALOTIN [Concomitant]
     Indication: DYSLIPIDAEMIA
     Dosage: 10 mg, UNK
     Route: 048
  8. HYALEIN [Concomitant]
     Indication: EYE DISORDER
     Dosage: UNK
     Route: 047

REACTIONS (5)
  - Oedema [Recovered/Resolved]
  - Abdominal discomfort [Recovered/Resolved]
  - Nausea [Recovered/Resolved]
  - Pain in extremity [Recovered/Resolved]
  - Brain natriuretic peptide increased [None]
